FAERS Safety Report 8141948-4 (Version None)
Quarter: 2012Q1

REPORT INFORMATION
  Report Type: 
  Country: None (occurrence: None)
  Receive Date: 20120216
  Receipt Date: 20120207
  Transmission Date: 20120608
  Serious: Yes (Death)
  Sender: FDA-Public Use
  Company Number: FR-GLAXOSMITHKLINE-B0778032A

PATIENT
  Sex: Female

DRUGS (3)
  1. ARIXTRA [Suspect]
     Indication: PRODUCT USED FOR UNKNOWN INDICATION
     Dates: start: 20110101, end: 20110101
  2. ANTIVITAMINS K [Concomitant]
  3. PREDNISOLONE [Suspect]
     Indication: PRODUCT USED FOR UNKNOWN INDICATION
     Dates: start: 20110101, end: 20110101

REACTIONS (1)
  - GASTROINTESTINAL HAEMORRHAGE [None]
